FAERS Safety Report 17224204 (Version 2)
Quarter: 2020Q1

REPORT INFORMATION
  Report Type: Spontaneous
  Country: US (occurrence: US)
  Receive Date: 20200102
  Receipt Date: 20200214
  Transmission Date: 20200409
  Serious: Yes (Hospitalization, Other)
  Sender: FDA-Public Use
  Company Number: US-PFIZER INC-2019558461

PATIENT
  Age: 76 Year
  Sex: Female
  Weight: 62 kg

DRUGS (11)
  1. OMEPRAZOLE. [Concomitant]
     Active Substance: OMEPRAZOLE
     Dosage: 20 MG, DAILY
  2. MAGNESIUM + VITAMIN B [Concomitant]
     Dosage: UNK
  3. ARAVA [Concomitant]
     Active Substance: LEFLUNOMIDE
     Indication: ARTHRITIS
     Dosage: 20 MG, 1X/DAY
  4. CALCIUM + D3 [CALCIUM;COLECALCIFEROL] [Concomitant]
     Dosage: UNK
  5. METHIMAZOLE. [Concomitant]
     Active Substance: METHIMAZOLE
     Indication: AUTOIMMUNE THYROIDITIS
     Dosage: 5 MG, DAILY
  6. XELJANZ XR [Suspect]
     Active Substance: TOFACITINIB CITRATE
     Indication: PSORIATIC ARTHROPATHY
     Dosage: 11 MG, 1X/DAY
     Dates: start: 2018, end: 20190501
  7. ANGIMET [METOPROLOL TARTRATE] [Concomitant]
     Indication: TACHYCARDIA
     Dosage: 25 MG, UNK (METOPROLOL TART 25 MG. TWO AT NIGHT )
  8. ARAVA [Concomitant]
     Active Substance: LEFLUNOMIDE
     Dosage: 20 MG, ALTERNATE DAY (1 EVERY OTHER DAY)
  9. PROLIA [Concomitant]
     Active Substance: DENOSUMAB
     Dosage: UNK (EVERY 6 MOS(MONTHS))
  10. CALCIPOTRIENE. [Concomitant]
     Active Substance: CALCIPOTRIENE
     Indication: SEBORRHOEIC DERMATITIS
     Dosage: UNK, 1X/DAY (ON TOP HALF FACE/EVERY NIGHT)
  11. METOPROLOL TARTRATE. [Concomitant]
     Active Substance: METOPROLOL TARTRATE
     Indication: TACHYCARDIA
     Dosage: 50 MG, 1X/DAY (25 MG TWO AT NITE)

REACTIONS (6)
  - Gait disturbance [Unknown]
  - Asthenia [Unknown]
  - Haemoglobin decreased [Unknown]
  - Dyspnoea [Unknown]
  - Weight decreased [Unknown]
  - Near death experience [Not Recovered/Not Resolved]

NARRATIVE: CASE EVENT DATE: 2018
